FAERS Safety Report 17292234 (Version 1)
Quarter: 2020Q1

REPORT INFORMATION
  Report Type: Spontaneous
  Country: PL (occurrence: PL)
  Receive Date: 20200121
  Receipt Date: 20200121
  Transmission Date: 20200409
  Serious: Yes (Other)
  Sender: FDA-Public Use
  Company Number: PL-BAYER-2019-228142

PATIENT
  Age: 68 Year
  Sex: Female
  Weight: 67 kg

DRUGS (1)
  1. ULTRAVIST [Suspect]
     Active Substance: IOPROMIDE
     Dosage: 90 ML, ONCE
     Route: 042
     Dates: start: 20191205, end: 20191205

REACTIONS (2)
  - Loss of consciousness [None]
  - Cardiac arrest [None]
